FAERS Safety Report 23976370 (Version 2)
Quarter: 2024Q2

REPORT INFORMATION
  Report Type: Spontaneous
  Country: US (occurrence: US)
  Receive Date: 20240614
  Receipt Date: 20240618
  Transmission Date: 20240716
  Serious: No
  Sender: FDA-Public Use
  Company Number: US-ABBVIE-5797543

PATIENT
  Age: 51 Year
  Sex: Female
  Weight: 77 kg

DRUGS (4)
  1. RESTASIS [Suspect]
     Active Substance: CYCLOSPORINE
     Indication: Product used for unknown indication
     Route: 047
  2. CEQUA [Suspect]
     Active Substance: CYCLOSPORINE
     Indication: Product used for unknown indication
     Route: 065
  3. CYCLOSPORINE [Suspect]
     Active Substance: CYCLOSPORINE
     Indication: Dry eye
     Dosage: 0.05% UNIT DOSE?LAST ADMIN DATE: 2024
     Route: 047
     Dates: start: 202405
  4. CYCLOSPORINE [Suspect]
     Active Substance: CYCLOSPORINE
     Indication: Dry eye
     Dosage: 0.05% UNIT DOSE
     Route: 047
     Dates: start: 20240507, end: 20240511

REACTIONS (9)
  - Photosensitivity reaction [Recovered/Resolved]
  - Eye disorder [Not Recovered/Not Resolved]
  - Dry eye [Recovered/Resolved]
  - Headache [Recovered/Resolved]
  - Adverse drug reaction [Unknown]
  - Dry eye [Unknown]
  - Headache [Unknown]
  - Photosensitivity reaction [Unknown]
  - Adverse drug reaction [Unknown]

NARRATIVE: CASE EVENT DATE: 20240101
